FAERS Safety Report 15150261 (Version 1)
Quarter: 2018Q3

REPORT INFORMATION
  Report Type: Spontaneous
  Country: NL (occurrence: NL)
  Receive Date: 20180716
  Receipt Date: 20180716
  Transmission Date: 20181010
  Serious: Yes (Hospitalization)
  Sender: FDA-Public Use
  Company Number: NL-US WORLDMEDS, LLC-STA_00016712

PATIENT
  Age: 59 Year
  Sex: Female

DRUGS (8)
  1. AMANTADINE 100 MG [Concomitant]
     Indication: PRODUCT USED FOR UNKNOWN INDICATION
  2. DUTASTERIDE 0.5 MG [Concomitant]
     Indication: PRODUCT USED FOR UNKNOWN INDICATION
  3. LEVODOPA/BENSERAZIDE 100/25 MG [Concomitant]
     Indication: PRODUCT USED FOR UNKNOWN INDICATION
  4. PROPRANOLOL 80 MG [Concomitant]
     Indication: PRODUCT USED FOR UNKNOWN INDICATION
  5. APOMORPHINE HYDROCHLORIDE [Suspect]
     Active Substance: APOMORPHINE HYDROCHLORIDE
     Indication: PARKINSON^S DISEASE
     Dosage: DURING 16 HRS., BOLUS 0.50 ML (= 2.5 MG) MAXIMUM 4 TIMES PER 24 HRS.
     Route: 058
     Dates: start: 20121011
  6. OMEPRAZOLE 40 MG [Concomitant]
     Active Substance: OMEPRAZOLE
     Indication: PRODUCT USED FOR UNKNOWN INDICATION
  7. PROMETHAZINE 25 MG [Concomitant]
     Indication: PRODUCT USED FOR UNKNOWN INDICATION
  8. BUPROPION 150 MG [Concomitant]
     Active Substance: BUPROPION
     Indication: PRODUCT USED FOR UNKNOWN INDICATION

REACTIONS (3)
  - Weight decreased [Not Recovered/Not Resolved]
  - Asthenia [Not Recovered/Not Resolved]
  - Pneumonia [Not Recovered/Not Resolved]

NARRATIVE: CASE EVENT DATE: 201408
